FAERS Safety Report 5089673-0 (Version None)
Quarter: 2006Q3

REPORT INFORMATION
  Report Type: 
  Country: None (occurrence: None)
  Receive Date: 20060828
  Receipt Date: 20060816
  Transmission Date: 20061208
  Serious: Yes (Other)
  Sender: FDA-Public Use
  Company Number: US-JNJFOC-20060803882

PATIENT
  Sex: Female

DRUGS (6)
  1. REMICADE [Suspect]
     Indication: CROHN'S DISEASE
     Route: 042
  2. REMICADE [Suspect]
     Indication: RHEUMATOID ARTHRITIS
     Route: 042
  3. PHENERGAN HCL [Concomitant]
  4. CLONOPIN [Concomitant]
  5. XANAX [Concomitant]
  6. OXYCONTIN [Concomitant]

REACTIONS (3)
  - ASPERGILLOSIS [None]
  - HISTOPLASMOSIS CUTANEOUS [None]
  - RASH PAPULAR [None]
